FAERS Safety Report 4839114-0 (Version None)
Quarter: 2005Q4

REPORT INFORMATION
  Report Type: 
  Country: None (occurrence: None)
  Receive Date: 20051129
  Receipt Date: 20051118
  Transmission Date: 20060501
  Serious: Yes (Other)
  Sender: FDA-Public Use
  Company Number: J200503947

PATIENT
  Age: 71 Year
  Sex: Female

DRUGS (6)
  1. SAWACILLIN [Suspect]
     Indication: HELICOBACTER GASTRITIS
     Dosage: 250MG THREE TIMES PER DAY
     Route: 048
     Dates: start: 20051007, end: 20051008
  2. TAKEPRON [Suspect]
     Indication: HELICOBACTER GASTRITIS
     Dosage: 1Z THREE TIMES PER DAY
     Route: 048
     Dates: start: 20051007, end: 20051008
  3. CLARITHROMYCIN [Suspect]
     Indication: HELICOBACTER GASTRITIS
     Dosage: 200MG THREE TIMES PER DAY
     Route: 048
     Dates: start: 20051007, end: 20051008
  4. MEVALOTIN [Concomitant]
     Dosage: 10MG FOUR TIMES PER DAY
     Route: 048
     Dates: start: 20020511
  5. LASIX [Concomitant]
     Dosage: 40MG TWICE PER DAY
     Route: 048
     Dates: start: 20020511
  6. MAGNESIUM OXIDE [Concomitant]
     Dosage: 1G THREE TIMES PER DAY
     Route: 048
     Dates: start: 20020511

REACTIONS (2)
  - ERYTHEMA MULTIFORME [None]
  - PRURITUS [None]
